FAERS Safety Report 16442222 (Version 1)
Quarter: 2019Q2

REPORT INFORMATION
  Report Type: Report from Study
  Country: None (occurrence: US)
  Receive Date: 20190617
  Receipt Date: 20190617
  Transmission Date: 20190711
  Serious: No
  Sender: FDA-Public Use
  Company Number: US-US WORLDMEDS, LLC-USW201902-000318

PATIENT
  Age: 78 Year
  Sex: Male
  Weight: 81.64 kg

DRUGS (13)
  1. RYTARY [Concomitant]
     Active Substance: CARBIDOPA\LEVODOPA
  2. VITAMIN B12 [Concomitant]
     Active Substance: CYANOCOBALAMIN
  3. LAMOTRIGINE. [Concomitant]
     Active Substance: LAMOTRIGINE
  4. OMEPRAZOLE. [Concomitant]
     Active Substance: OMEPRAZOLE
  5. VITAMIN D3 [Concomitant]
     Active Substance: CHOLECALCIFEROL
  6. DULOXETINE HYDROCHLORIDE. [Concomitant]
     Active Substance: DULOXETINE HYDROCHLORIDE
  7. ALEVE [Concomitant]
     Active Substance: NAPROXEN SODIUM
  8. TAMSULOSIN [Concomitant]
     Active Substance: TAMSULOSIN
  9. SULFASALAZINE. [Concomitant]
     Active Substance: SULFASALAZINE
  10. APOKYN [Suspect]
     Active Substance: APOMORPHINE HYDROCHLORIDE
     Indication: PARKINSON^S DISEASE
     Route: 058
     Dates: start: 20190207, end: 20190207
  11. TIGAN [Concomitant]
     Active Substance: TRIMETHOBENZAMIDE HYDROCHLORIDE
  12. SIMVASTATIN. [Concomitant]
     Active Substance: SIMVASTATIN
  13. VITAMIN B6 [Concomitant]
     Active Substance: PYRIDOXINE HYDROCHLORIDE

REACTIONS (4)
  - Dizziness [Recovered/Resolved]
  - Nausea [Recovered/Resolved]
  - Somnolence [Recovered/Resolved]
  - Drug ineffective [Unknown]

NARRATIVE: CASE EVENT DATE: 20190207
